FAERS Safety Report 8998021 (Version 1)
Quarter: 2013Q1

REPORT INFORMATION
  Report Type: Spontaneous
  Country: US (occurrence: US)
  Receive Date: 20130104
  Receipt Date: 20130104
  Transmission Date: 20140127
  Serious: Yes (Other)
  Sender: FDA-Public Use
  Company Number: US-ROXANE LABORATORIES, INC.-2013-RO-00002RO

PATIENT
  Age: 43 Year
  Sex: Female

DRUGS (2)
  1. ACARBOSE [Suspect]
     Indication: DIABETES MELLITUS
  2. EXCEDRIN [Suspect]
     Indication: HEADACHE

REACTIONS (3)
  - Hepatic failure [Recovered/Resolved]
  - Hepatotoxicity [Recovered/Resolved]
  - Liver injury [Unknown]
